FAERS Safety Report 9569150 (Version 1)
Quarter: 2013Q3

REPORT INFORMATION
  Report Type: Spontaneous
  Country: US (occurrence: US)
  Receive Date: 20130930
  Receipt Date: 20130930
  Transmission Date: 20140515
  Serious: No
  Sender: FDA-Public Use
  Company Number: US-AMGEN-USASP2013058975

PATIENT
  Age: 52 Year
  Sex: Female

DRUGS (1)
  1. ENBREL [Suspect]
     Indication: PSORIATIC ARTHROPATHY
     Dosage: 50 MG, QWK (Q7D)
     Route: 058
     Dates: start: 201305

REACTIONS (5)
  - Diarrhoea [Unknown]
  - Night sweats [Unknown]
  - Influenza like illness [Unknown]
  - Fatigue [Unknown]
  - Neuropathy peripheral [Recovered/Resolved]
